FAERS Safety Report 6981709-2 (Version None)
Quarter: 2010Q3

REPORT INFORMATION
  Report Type: 
  Country: None (occurrence: None)
  Receive Date: 20100914
  Receipt Date: 20091021
  Transmission Date: 20110219
  Serious: No
  Sender: FDA-Public Use
  Company Number: US-PFIZER INC-2009256814

PATIENT
  Sex: Male
  Weight: 85.3 kg

DRUGS (4)
  1. LYRICA [Suspect]
     Indication: FIBROMYALGIA
     Dosage: 25 MG, 3X/DAY
     Route: 048
     Dates: start: 20080601
  2. METOPROLOL [Concomitant]
     Indication: HYPERTENSION
     Dosage: 100 MG, 2X/DAY
     Route: 048
  3. NEXIUM [Concomitant]
     Indication: ABDOMINAL DISCOMFORT
     Dosage: 20 MG, 1X/DAY
     Route: 048
  4. TAMSULOSIN HYDROCHLORIDE [Concomitant]
     Indication: PROSTATOMEGALY
     Dosage: 0.4 MG, 1X/DAY
     Route: 048

REACTIONS (3)
  - OEDEMA PERIPHERAL [None]
  - PAIN [None]
  - TOOTHACHE [None]
